FAERS Safety Report 24018089 (Version 2)
Quarter: 2024Q3

REPORT INFORMATION
  Report Type: Spontaneous
  Country: BR (occurrence: BR)
  Receive Date: 20240627
  Receipt Date: 20240703
  Transmission Date: 20241017
  Serious: Yes (Death, Hospitalization, Other)
  Sender: RECORDATI
  Company Number: BR-RECORDATI-2024004747

PATIENT

DRUGS (2)
  1. CARBAGLU [Suspect]
     Active Substance: CARGLUMIC ACID
     Indication: Methylmalonic acidaemia
     Dosage: 50 MILLIGRAM/KILOGRAM, DAIY
     Dates: end: 2024
  2. CARBAGLU [Suspect]
     Active Substance: CARGLUMIC ACID
     Dosage: DOSE INCREASED
     Dates: start: 2024

REACTIONS (5)
  - Cardio-respiratory arrest [Fatal]
  - Blood bicarbonate decreased [Not Recovered/Not Resolved]
  - Influenza like illness [Not Recovered/Not Resolved]
  - Blood electrolytes abnormal [Not Recovered/Not Resolved]
  - Hyperammonaemic crisis [Unknown]

NARRATIVE: CASE EVENT DATE: 20240101
